FAERS Safety Report 21863821 (Version 1)
Quarter: 2023Q1

REPORT INFORMATION
  Report Type: Report from Study
  Country: AR (occurrence: AR)
  Receive Date: 20230116
  Receipt Date: 20230116
  Transmission Date: 20230418
  Serious: Yes (Hospitalization)
  Sender: FDA-Public Use
  Company Number: AR-UCBSA-2023001537

PATIENT
  Age: 22 Year
  Sex: Male

DRUGS (1)
  1. BRIVARACETAM [Suspect]
     Active Substance: BRIVARACETAM
     Indication: Epilepsy
     Dosage: 100 MILLIGRAM, ONCE DAILY (QD)
     Route: 048
     Dates: start: 20220926

REACTIONS (3)
  - Dyskinesia [Not Recovered/Not Resolved]
  - Somnolence [Recovering/Resolving]
  - Toxicity to various agents [Unknown]

NARRATIVE: CASE EVENT DATE: 20230103
